FAERS Safety Report 5745620-7 (Version None)
Quarter: 2008Q2

REPORT INFORMATION
  Report Type: 
  Country: None (occurrence: None)
  Receive Date: 20080521
  Receipt Date: 20080513
  Transmission Date: 20081010
  Serious: Yes (Other)
  Sender: FDA-Public Use
  Company Number: US-PFIZER INC-2008025974

PATIENT
  Age: 86 Year
  Sex: Female

DRUGS (2)
  1. XALATAN [Suspect]
     Indication: INTRAOCULAR PRESSURE INCREASED
     Route: 031
     Dates: start: 20080103, end: 20080314
  2. XALATAN [Suspect]
     Indication: OPEN ANGLE GLAUCOMA

REACTIONS (4)
  - BACK PAIN [None]
  - GAIT DISTURBANCE [None]
  - MUSCLE SPASMS [None]
  - NECK PAIN [None]
